FAERS Safety Report 7100848-9 (Version None)
Quarter: 2010Q4

REPORT INFORMATION
  Report Type: 
  Country: None (occurrence: None)
  Receive Date: 20101113
  Receipt Date: 20100323
  Transmission Date: 20110411
  Serious: Yes (Other)
  Sender: FDA-Public Use
  Company Number: US-ALLERGAN-1003816US

PATIENT
  Age: 33 Year
  Sex: Male

DRUGS (2)
  1. BOTOXA? [Suspect]
     Indication: MUSCLE SPASTICITY
     Dosage: 300 UNITS, SINGLE
     Route: 030
     Dates: start: 20100304, end: 20100304
  2. MACRODANTIN [Concomitant]

REACTIONS (5)
  - ARTHROPATHY [None]
  - DECREASED APPETITE [None]
  - DYSPNOEA [None]
  - HYPERHIDROSIS [None]
  - MUSCULAR WEAKNESS [None]
